FAERS Safety Report 9632189 (Version 6)
Quarter: 2017Q1

REPORT INFORMATION
  Report Type: Spontaneous
  Country: CA (occurrence: CA)
  Receive Date: 20131018
  Receipt Date: 20170130
  Transmission Date: 20170429
  Serious: Yes (Hospitalization, Other)
  Sender: FDA-Public Use
  Company Number: CA-ROCHE-1290420

PATIENT
  Age: 31 Year
  Sex: Female

DRUGS (8)
  1. SYMBICORT [Concomitant]
     Active Substance: BUDESONIDE\FORMOTEROL FUMARATE DIHYDRATE
  2. AVAMYS [Concomitant]
     Active Substance: FLUTICASONE FUROATE
  3. PREDNISONE. [Concomitant]
     Active Substance: PREDNISONE
  4. ATROVENT [Concomitant]
     Active Substance: IPRATROPIUM BROMIDE
  5. SINGULAIR [Concomitant]
     Active Substance: MONTELUKAST SODIUM
  6. XOLAIR [Suspect]
     Active Substance: OMALIZUMAB
     Indication: ASTHMA
     Route: 058
     Dates: start: 20131009
  7. ADVAIR HFA [Concomitant]
     Active Substance: FLUTICASONE PROPIONATE\SALMETEROL XINAFOATE
  8. VENTOLIN [Concomitant]
     Active Substance: ALBUTEROL SULFATE
     Indication: ASTHMA

REACTIONS (16)
  - Discomfort [Unknown]
  - Hand fracture [Unknown]
  - Amnesia [Unknown]
  - Seasonal allergy [Unknown]
  - Asthma [Unknown]
  - Depression [Unknown]
  - Aphonia [Recovered/Resolved]
  - Wheezing [Unknown]
  - Sensitivity to weather change [Unknown]
  - Feeling abnormal [Unknown]
  - Oropharyngeal pain [Unknown]
  - Accident [Unknown]
  - Chest discomfort [Unknown]
  - Lower limb fracture [Unknown]
  - Dyspnoea [Unknown]
  - Middle insomnia [Unknown]

NARRATIVE: CASE EVENT DATE: 20131118
